FAERS Safety Report 8003953-8 (Version None)
Quarter: 2011Q4

REPORT INFORMATION
  Report Type: 
  Country: None (occurrence: None)
  Receive Date: 20111222
  Receipt Date: 20111215
  Transmission Date: 20120403
  Serious: Yes (Other)
  Sender: FDA-Public Use
  Company Number: US-BAYER-2011-032236

PATIENT
  Age: 19 Year
  Sex: Female
  Weight: 45 kg

DRUGS (3)
  1. DROSPIRENONE AND ETHINYL ESTRADIOL [Suspect]
     Indication: CONTRACEPTION
     Dosage: UNK UNK, QD
     Route: 048
     Dates: start: 20091201, end: 20110401
  2. LORTAB [Concomitant]
  3. CIPROFLOXACIN [Concomitant]

REACTIONS (5)
  - NAUSEA [None]
  - PAIN [None]
  - CHOLECYSTITIS CHRONIC [None]
  - ABDOMINAL PAIN UPPER [None]
  - PYREXIA [None]
